FAERS Safety Report 10389762 (Version 1)
Quarter: 2014Q3

REPORT INFORMATION
  Report Type: Spontaneous
  Country: CN (occurrence: CN)
  Receive Date: 20140818
  Receipt Date: 20140818
  Transmission Date: 20150326
  Serious: Yes (Other)
  Sender: FDA-Public Use
  Company Number: CN-JNJFOC-20140804719

PATIENT
  Age: 28 Year
  Sex: Female

DRUGS (2)
  1. OLANZAPINE. [Suspect]
     Active Substance: OLANZAPINE
     Indication: BIPOLAR DISORDER
     Route: 065
  2. INVEGA SUSTENNA [Suspect]
     Active Substance: PALIPERIDONE PALMITATE
     Indication: BIPOLAR DISORDER
     Route: 030
     Dates: start: 201311

REACTIONS (6)
  - Bipolar disorder [Recovered/Resolved]
  - Weight increased [Not Recovered/Not Resolved]
  - Somnolence [Unknown]
  - Pain in extremity [Unknown]
  - Product counterfeit [Unknown]
  - Off label use [Unknown]

NARRATIVE: CASE EVENT DATE: 201311
